FAERS Safety Report 21851744 (Version 1)
Quarter: 2023Q1

REPORT INFORMATION
  Report Type: Report from Study
  Country: US (occurrence: US)
  Receive Date: 20230112
  Receipt Date: 20230112
  Transmission Date: 20230417
  Serious: No
  Sender: FDA-Public Use
  Company Number: US-ABBVIE-22K-163-4446428-00

PATIENT
  Age: 61 Year
  Sex: Female

DRUGS (4)
  1. HUMIRA [Suspect]
     Active Substance: ADALIMUMAB
     Indication: Crohn^s disease
     Route: 058
  2. HUMIRA [Suspect]
     Active Substance: ADALIMUMAB
     Dosage: DAY 1
     Route: 058
     Dates: start: 20211101, end: 20211101
  3. HUMIRA [Suspect]
     Active Substance: ADALIMUMAB
     Dosage: DAY 15
     Route: 058
     Dates: start: 20211115, end: 20211115
  4. HUMIRA [Suspect]
     Active Substance: ADALIMUMAB
     Route: 058
     Dates: start: 20211101

REACTIONS (15)
  - Constipation [Unknown]
  - Gastrointestinal sounds abnormal [Unknown]
  - Hypoaesthesia [Unknown]
  - Cough [Not Recovered/Not Resolved]
  - Flatulence [Unknown]
  - Hyperhidrosis [Recovered/Resolved with Sequelae]
  - Injection site erythema [Unknown]
  - Frequent bowel movements [Not Recovered/Not Resolved]
  - Injection site swelling [Unknown]
  - Injection site bruising [Recovered/Resolved]
  - Arthralgia [Unknown]
  - Pain [Unknown]
  - Diarrhoea [Not Recovered/Not Resolved]
  - Nasopharyngitis [Unknown]
  - Respiratory syncytial virus infection [Unknown]

NARRATIVE: CASE EVENT DATE: 20220501
